FAERS Safety Report 7106022-4 (Version None)
Quarter: 2010Q4

REPORT INFORMATION
  Report Type: 
  Country: None (occurrence: None)
  Receive Date: 20101018
  Receipt Date: 20091002
  Transmission Date: 20110411
  Serious: Yes (Other)
  Sender: FDA-Public Use
  Company Number: US-WYE-H03881308

PATIENT
  Age: 47 Year
  Sex: Female
  Weight: 67.65 kg

DRUGS (3)
  1. PREMARIN [Suspect]
     Indication: HOT FLUSH
  2. PREMARIN [Suspect]
     Indication: MENOPAUSAL SYMPTOMS
  3. PROVERA [Suspect]
     Indication: MENOPAUSAL SYMPTOMS

REACTIONS (1)
  - BREAST CANCER [None]
